FAERS Safety Report 6127200-7 (Version None)
Quarter: 2009Q1

REPORT INFORMATION
  Report Type: 
  Country: None (occurrence: None)
  Receive Date: 20090320
  Receipt Date: 20090310
  Transmission Date: 20090719
  Serious: Yes (Hospitalization)
  Sender: FDA-Public Use
  Company Number: JP-JNJCH-2009007427

PATIENT
  Sex: Male

DRUGS (12)
  1. CETIRIZINE HYDROCHLORIDE [Suspect]
     Indication: SEASONAL ALLERGY
     Dosage: TEXT:20 MG
     Route: 048
     Dates: start: 20090122, end: 20090126
  2. CETIRIZINE HYDROCHLORIDE [Suspect]
     Dates: start: 20090202, end: 20090205
  3. NAFTOPIDIL [Concomitant]
     Dosage: TEXT:75 MG
     Route: 048
  4. EVIPROSTAT [Concomitant]
     Dosage: TEXT:6 DF
     Route: 048
     Dates: start: 20030726
  5. SALAZOSULFAPYRIDINE [Concomitant]
     Dosage: TEXT:1000 MG
     Route: 048
     Dates: start: 20030111
  6. INDOMETHACIN [Concomitant]
     Dosage: TEXT:400 MG
     Route: 048
  7. FUROSEMIDE [Concomitant]
     Dosage: TEXT:20 MG
     Route: 048
     Dates: start: 20060202
  8. LIMAPROST [Concomitant]
     Dosage: TEXT:15 MCG
     Route: 048
  9. TEPRENONE [Concomitant]
     Dosage: TEXT:100 MG
     Route: 048
  10. MECOBALAMIN [Concomitant]
     Dosage: TEXT:1500 MCG
     Route: 048
     Dates: start: 20030301
  11. NIFEDIPINE [Concomitant]
     Dosage: TEXT:20 MG
     Route: 048
     Dates: start: 20051026
  12. PREDNISOLONE [Concomitant]
     Dosage: TEXT:5 MG
     Route: 048
     Dates: start: 20080617

REACTIONS (1)
  - URINARY RETENTION [None]
